APPROVED DRUG PRODUCT: ZEMBRACE SYMTOUCH
Active Ingredient: SUMATRIPTAN SUCCINATE
Strength: EQ 3MG BASE/0.5ML (EQ 3MG BASE/0.5ML)
Dosage Form/Route: SOLUTION;SUBCUTANEOUS
Application: N208223 | Product #001
Applicant: TONIX MEDICINES INC
Approved: Jan 28, 2016 | RLD: Yes | RS: No | Type: RX

PATENTS:
Patent 10537554 | Expires: Jan 29, 2036
Patent 11364224 | Expires: Jan 29, 2036
Patent 12097183 | Expires: Jan 29, 2036